FAERS Safety Report 11246437 (Version 1)
Quarter: 2015Q3

REPORT INFORMATION
  Report Type: Spontaneous
  Country: US (occurrence: None)
  Receive Date: 20150706
  Receipt Date: 20150706
  Transmission Date: 20151125
  Serious: Yes (Other)
  Sender: FDA-Public Use
  Company Number: None

PATIENT
  Age: 70 Year
  Sex: Female

DRUGS (1)
  1. XELODA [Suspect]
     Active Substance: CAPECITABINE

REACTIONS (3)
  - Vision blurred [None]
  - Ocular discomfort [None]
  - Dry eye [None]

NARRATIVE: CASE EVENT DATE: 20150703
